FAERS Safety Report 17347313 (Version 1)
Quarter: 2020Q1

REPORT INFORMATION
  Report Type: Spontaneous
  Country: US (occurrence: US)
  Receive Date: 20200129
  Receipt Date: 20200129
  Transmission Date: 20200409
  Serious: Yes (Hospitalization)
  Sender: FDA-Public Use
  Company Number: None

PATIENT
  Age: 44 Year
  Sex: Male
  Weight: 83.25 kg

DRUGS (4)
  1. KLOR-CON 20MEQ [Concomitant]
     Dates: start: 20200115
  2. FELODIPINE 2.5MG [Concomitant]
     Dates: start: 20191205
  3. LOSARTAN 50 MG [Concomitant]
     Active Substance: LOSARTAN
     Dates: start: 20191205
  4. PEMBROLIZUMAB. [Suspect]
     Active Substance: PEMBROLIZUMAB
     Indication: CERVIX CARCINOMA
     Dosage: ?          OTHER FREQUENCY:EVERY 21 DAYS;?
     Route: 042
     Dates: start: 20190322, end: 20200108

REACTIONS (4)
  - Renal injury [None]
  - Blood potassium decreased [None]
  - Thrombotic microangiopathy [None]
  - Blood creatinine increased [None]

NARRATIVE: CASE EVENT DATE: 20200109
